FAERS Safety Report 16873022 (Version 1)
Quarter: 2019Q4

REPORT INFORMATION
  Report Type: Spontaneous
  Country: RU (occurrence: RU)
  Receive Date: 20191001
  Receipt Date: 20191001
  Transmission Date: 20200122
  Serious: Yes (Other)
  Sender: FDA-Public Use
  Company Number: RU-ROCHE-2413855

PATIENT
  Sex: Female

DRUGS (1)
  1. CAPECITABINE. [Suspect]
     Active Substance: CAPECITABINE
     Indication: GASTROINTESTINAL NEOPLASM
     Dosage: 1 COURSE
     Route: 065

REACTIONS (2)
  - Abdominal pain [Unknown]
  - Embolism [Not Recovered/Not Resolved]
